FAERS Safety Report 4690560-8 (Version None)
Quarter: 2005Q2

REPORT INFORMATION
  Report Type: 
  Country: None (occurrence: None)
  Receive Date: 20050614
  Receipt Date: 20050614
  Transmission Date: 20051028
  Serious: Yes (Hospitalization)
  Sender: FDA-Public Use
  Company Number: None

PATIENT
  Sex: Female

DRUGS (14)
  1. ZYVOX [Suspect]
     Indication: OSTEOMYELITIS
     Dates: start: 20040204, end: 20041217
  2. PROGRAF [Concomitant]
  3. PREDNISONE TAB [Concomitant]
  4. BACTRIM [Concomitant]
  5. SPORANOX [Concomitant]
  6. FOLIC ACID [Concomitant]
  7. TOPROL-XL [Concomitant]
  8. CALCIUM GLUCONATE [Concomitant]
  9. ALBUTEROL [Concomitant]
  10. PULMICORT [Concomitant]
  11. PERCOCET [Concomitant]
  12. HUMULIN [Concomitant]
  13. IRON [Concomitant]
  14. PREVACID [Concomitant]

REACTIONS (3)
  - ANAEMIA [None]
  - BONE MARROW DEPRESSION [None]
  - PNEUMONIA [None]
